FAERS Safety Report 16878696 (Version 6)
Quarter: 2020Q1

REPORT INFORMATION
  Report Type: Report from Study
  Country: KR (occurrence: KR)
  Receive Date: 20191002
  Receipt Date: 20200115
  Transmission Date: 20200409
  Serious: Yes (Hospitalization)
  Sender: FDA-Public Use
  Company Number: KR-SA-2019SA270349

PATIENT
  Age: 35 Year
  Sex: Female
  Weight: 52.05 kg

DRUGS (11)
  1. BENZYDAMINE [Concomitant]
     Active Substance: BENZYDAMINE
     Indication: PHARYNGOTONSILLITIS
     Dosage: UNK UNK, TID. GARGLE
     Dates: start: 20190930
  2. IBUPROFEN. [Concomitant]
     Active Substance: IBUPROFEN
     Indication: PYREXIA
     Dosage: 200 MG, PRN
     Route: 048
     Dates: start: 20191002
  3. DOCETAXEL. [Suspect]
     Active Substance: DOCETAXEL
     Dosage: 75 MG/M2, Q3W
     Route: 042
     Dates: start: 20190529, end: 20190529
  4. MOXIFLOXACIN. [Concomitant]
     Active Substance: MOXIFLOXACIN
     Indication: PHARYNGOTONSILLITIS
     Dosage: 400 MG, QD
     Route: 048
     Dates: start: 20190923, end: 20190928
  5. TAZOFERAN [Concomitant]
     Active Substance: PIPERACILLIN SODIUM\TAZOBACTAM SODIUM
     Indication: FEBRILE NEUTROPENIA
     Dosage: 4.5 G, QID
     Route: 042
     Dates: start: 20190928, end: 20190928
  6. ACETAMINOPHEN. [Concomitant]
     Active Substance: ACETAMINOPHEN
     Indication: FEBRILE NEUTROPENIA
     Dosage: 1 G, QD
     Route: 042
     Dates: start: 20190928, end: 20190928
  7. ACETAMINOPHEN. [Concomitant]
     Active Substance: ACETAMINOPHEN
     Dosage: 650 MG, QD
     Route: 048
     Dates: start: 20190929, end: 20190929
  8. TERRAMYCIN [OXYTETRACYCLINE] [Concomitant]
     Indication: NASAL DRYNESS
     Dosage: UNK
     Route: 045
     Dates: start: 20190929
  9. DOCETAXEL. [Suspect]
     Active Substance: DOCETAXEL
     Indication: BREAST CANCER
     Dosage: 65 MG/M2, Q3W
     Route: 042
     Dates: start: 20190919, end: 20190919
  10. ACTIFED [CETYLPYRIDINIUM CHLORIDE;DICHLOROBENZYL ALCOHOL;LIDOCAINE HYD [Concomitant]
     Indication: PHARYNGOTONSILLITIS
     Dosage: 60/2.5 MG, BID
     Route: 048
     Dates: start: 20190923, end: 20190925
  11. AUGMEX DUO [AMOXICILLIN SODIUM;CLAVULANATE POTASSIUM] [Concomitant]
     Indication: PHARYNGOTONSILLITIS
     Dosage: 437.5 MG/62.5MG, BID
     Route: 048
     Dates: start: 20191002

REACTIONS (11)
  - Pyrexia [Recovered/Resolved]
  - Febrile neutropenia [Recovered/Resolved]
  - Immune-mediated hepatitis [Recovered/Resolved]
  - Rhinorrhoea [Recovered/Resolved]
  - Pharyngotonsillitis [Recovered/Resolved]
  - Productive cough [Recovered/Resolved]
  - Cough [Recovered/Resolved]
  - Dizziness [Recovered/Resolved]
  - Fatigue [Recovered/Resolved]
  - Oropharyngeal pain [Recovered/Resolved]
  - Nasal dryness [Recovered/Resolved]

NARRATIVE: CASE EVENT DATE: 20190613
